FAERS Safety Report 19360251 (Version 2)
Quarter: 2021Q2

REPORT INFORMATION
  Report Type: Spontaneous
  Country: GB (occurrence: GB)
  Receive Date: 20210601
  Receipt Date: 20210614
  Transmission Date: 20210717
  Serious: Yes (Other)
  Sender: FDA-Public Use
  Company Number: GB-VER-202100044

PATIENT

DRUGS (1)
  1. TRIPTORELIN [Suspect]
     Active Substance: TRIPTORELIN
     Indication: PRODUCT USED FOR UNKNOWN INDICATION
     Route: 030

REACTIONS (4)
  - Abdominal pain upper [Unknown]
  - Product administered at inappropriate site [Unknown]
  - Incorrect route of product administration [Unknown]
  - Syncope [Unknown]

NARRATIVE: CASE EVENT DATE: 202105
